FAERS Safety Report 4697332-9 (Version None)
Quarter: 2005Q2

REPORT INFORMATION
  Report Type: 
  Country: None (occurrence: None)
  Receive Date: 20050620
  Receipt Date: 20050613
  Transmission Date: 20051028
  Serious: Yes (Death)
  Sender: FDA-Public Use
  Company Number: ESWYE742614JUN05

PATIENT
  Sex: Male

DRUGS (1)
  1. CITALOPRAM, CONTROL FOR VENLAFAXINE HYDROCHLORIDE (CITALOPRAM, CONTROL [Suspect]
     Indication: DEPRESSION
     Dosage: 30 MG 1X PER 1 DAY ORAL
     Route: 048
     Dates: start: 20020306, end: 20020821

REACTIONS (1)
  - DEATH [None]
